FAERS Safety Report 15431456 (Version 23)
Quarter: 2024Q3

REPORT INFORMATION
  Report Type: Spontaneous
  Country: FR (occurrence: FR)
  Receive Date: 20180926
  Receipt Date: 20240916
  Transmission Date: 20241017
  Serious: Yes (Other)
  Sender: MYLAN
  Company Number: None

PATIENT
  Age: 1 Day
  Sex: Male
  Weight: 1.89 kg

DRUGS (85)
  1. FUROSEMIDE [Suspect]
     Active Substance: FUROSEMIDE
     Indication: Hypertension
     Dosage: 50 MG, UNK
     Route: 064
     Dates: start: 20170516
  2. FUROSEMIDE [Suspect]
     Active Substance: FUROSEMIDE
     Dosage: 40 MILLIGRAM
     Route: 064
  3. FUROSEMIDE [Suspect]
     Active Substance: FUROSEMIDE
     Dosage: 50 MILLIGRAM
     Route: 064
     Dates: start: 201705
  4. TRAMADOL [Suspect]
     Active Substance: TRAMADOL\TRAMADOL HYDROCHLORIDE
     Indication: Diabetic neuropathy
     Dosage: 50 MG, QD
     Route: 064
     Dates: start: 20160930, end: 20170306
  5. TRAMADOL [Suspect]
     Active Substance: TRAMADOL\TRAMADOL HYDROCHLORIDE
     Dosage: UNK
     Route: 064
  6. TRAMADOL [Suspect]
     Active Substance: TRAMADOL\TRAMADOL HYDROCHLORIDE
     Dosage: 100 MILLIGRAM, QD
     Route: 064
     Dates: start: 20160930, end: 20170306
  7. ARIPIPRAZOLE [Suspect]
     Active Substance: ARIPIPRAZOLE
     Indication: Bipolar I disorder
     Dosage: 10 MG, QD
     Route: 064
     Dates: start: 20160930, end: 20170224
  8. RAMIPRIL [Suspect]
     Active Substance: RAMIPRIL
     Indication: Hypertension
     Dosage: 2.5 MG, QD
     Route: 064
     Dates: start: 20160930, end: 20170224
  9. METFORMIN [Suspect]
     Active Substance: METFORMIN HYDROCHLORIDE
     Indication: Type 2 diabetes mellitus
     Dosage: 1700 MG, QD,1700 MG, QD/ 850 MG DAILY
     Route: 064
     Dates: start: 20160930, end: 20170224
  10. METFORMIN [Suspect]
     Active Substance: METFORMIN HYDROCHLORIDE
     Dosage: 1700 MILLIGRAM, QD/850 MG DAILY
     Route: 064
     Dates: start: 20170804
  11. METFORMIN [Suspect]
     Active Substance: METFORMIN HYDROCHLORIDE
     Dosage: 850 MILLIGRAM, QD
     Route: 064
     Dates: start: 20160930, end: 20170224
  12. METFORMIN [Suspect]
     Active Substance: METFORMIN HYDROCHLORIDE
     Dosage: 850 MILLIGRAM, QD
     Route: 064
     Dates: start: 20170224
  13. AMOXICILLIN [Suspect]
     Active Substance: AMOXICILLIN
     Indication: Product used for unknown indication
     Dosage: 3 G, QD
     Route: 064
     Dates: start: 20170804, end: 20170811
  14. AMOXICILLIN [Suspect]
     Active Substance: AMOXICILLIN
     Dosage: 1 GRAM, QD
     Route: 064
     Dates: start: 20170804, end: 20170811
  15. AMOXICILLIN [Suspect]
     Active Substance: AMOXICILLIN
     Dosage: 1 MILLIGRAM, QD
     Route: 064
     Dates: start: 201708, end: 20170914
  16. AMOXICILLIN [Suspect]
     Active Substance: AMOXICILLIN
     Dosage: 1 MILLIGRAM, QD
     Route: 064
     Dates: start: 201708, end: 20180811
  17. AMOXICILLIN [Suspect]
     Active Substance: AMOXICILLIN
     Dosage: 3 GRAM, QD
     Route: 064
     Dates: start: 20170804, end: 20170914
  18. AMOXICILLIN [Suspect]
     Active Substance: AMOXICILLIN
     Dosage: 1 GRAM, QD
     Route: 064
     Dates: start: 201708, end: 20170914
  19. FOLIC ACID [Suspect]
     Active Substance: FOLIC ACID
     Indication: Normochromic normocytic anaemia
     Dosage: 5 MG, QD
     Route: 064
     Dates: start: 20170224, end: 20170914
  20. FOLIC ACID [Suspect]
     Active Substance: FOLIC ACID
     Dosage: 5 MILLIGRAM, QD
     Route: 064
     Dates: start: 20170313
  21. GLICLAZIDE [Suspect]
     Active Substance: GLICLAZIDE
     Indication: Type 2 diabetes mellitus
     Dosage: 120 MG, QD
     Route: 064
     Dates: start: 20160930, end: 20170224
  22. GLICLAZIDE [Suspect]
     Active Substance: GLICLAZIDE
     Dosage: 120 MG, UNK
     Route: 064
  23. GLICLAZIDE [Suspect]
     Active Substance: GLICLAZIDE
     Dosage: UNK
     Route: 064
  24. INSULIN GLARGINE [Suspect]
     Active Substance: INSULIN GLARGINE
     Indication: Type 2 diabetes mellitus
     Dosage: UNK
     Route: 064
     Dates: start: 20161230, end: 20170224
  25. INSULIN GLARGINE [Suspect]
     Active Substance: INSULIN GLARGINE
     Dosage: 20 MILLIGRAM, QD
     Route: 064
     Dates: start: 20170224, end: 20170914
  26. GABAPENTIN [Suspect]
     Active Substance: GABAPENTIN
     Indication: Diabetic neuropathy
     Dosage: 800 MG, QD
     Route: 064
     Dates: start: 20160930
  27. GABAPENTIN [Suspect]
     Active Substance: GABAPENTIN
     Dosage: 400 MILLIGRAM, QD
     Route: 064
     Dates: start: 20160930
  28. GABAPENTIN [Suspect]
     Active Substance: GABAPENTIN
     Dosage: 400 MILLIGRAM
     Route: 064
     Dates: start: 20160930
  29. METHYLDOPA [Suspect]
     Active Substance: METHYLDOPA
     Indication: Hypertension
     Dosage: 1500 MG, QD
     Route: 064
     Dates: start: 20170720
  30. METHYLDOPA [Suspect]
     Active Substance: METHYLDOPA
     Dosage: 1500 MG, UNK
     Route: 064
  31. METHYLDOPA [Suspect]
     Active Substance: METHYLDOPA
     Dosage: 500 MILLIGRAM, QD
     Route: 064
     Dates: start: 20170720
  32. METHYLDOPA [Suspect]
     Active Substance: METHYLDOPA
     Dosage: UNK
     Route: 064
  33. POLYETHYLENE GLYCOL 4000 [Suspect]
     Active Substance: POLYETHYLENE GLYCOL 4000
     Indication: Constipation
     Dosage: 1 DF, QD
     Route: 064
     Dates: start: 20160930, end: 20170405
  34. POLYETHYLENE GLYCOL 4000 [Suspect]
     Active Substance: POLYETHYLENE GLYCOL 4000
     Indication: Normochromic normocytic anaemia
     Dosage: 1 DOSAGE FORM
     Route: 064
     Dates: start: 20160930, end: 20170224
  35. POLYETHYLENE GLYCOL 4000 [Suspect]
     Active Substance: POLYETHYLENE GLYCOL 4000
     Dosage: UNK
     Route: 064
     Dates: start: 20170313
  36. POLYETHYLENE GLYCOL 4000 [Suspect]
     Active Substance: POLYETHYLENE GLYCOL 4000
     Dosage: 120 MILLIGRAM, QD
     Route: 064
     Dates: start: 20160930, end: 20170224
  37. NICOPATCH [Suspect]
     Active Substance: NICOTINE
     Indication: Ex-tobacco user
     Dosage: 7 MG, QD
     Route: 064
     Dates: start: 20170224, end: 20170516
  38. NICOPATCH [Suspect]
     Active Substance: NICOTINE
     Dosage: 7 MG, QD
     Route: 064
     Dates: start: 20170224, end: 20170914
  39. CHLORPROMAZINE [Suspect]
     Active Substance: CHLORPROMAZINE
     Indication: Bipolar I disorder
     Dosage: 25 MILLIGRAM, QD
     Route: 064
     Dates: start: 20170720
  40. CHLORPROMAZINE [Suspect]
     Active Substance: CHLORPROMAZINE
     Dosage: 25 MILLIGRAM, QD
     Route: 064
  41. CHLORPROMAZINE [Suspect]
     Active Substance: CHLORPROMAZINE
     Dosage: 0.5 DOSAGE FORM
     Route: 064
  42. LABETALOL HYDROCHLORIDE [Suspect]
     Active Substance: LABETALOL\LABETALOL HYDROCHLORIDE
     Indication: Hypertension
     Dosage: 80 MILLIGRAM, QD
     Route: 064
     Dates: start: 20170516, end: 20170914
  43. NICARDIPINE [Suspect]
     Active Substance: NICARDIPINE
     Indication: Hypertension
     Dosage: 50 MILLIGRAM, BID
     Route: 064
     Dates: start: 20170405, end: 20170914
  44. NICARDIPINE [Suspect]
     Active Substance: NICARDIPINE
     Dosage: 50 MILLIGRAM
     Route: 064
     Dates: start: 20170313, end: 20170914
  45. FERROUS SULFATE [Suspect]
     Active Substance: FERROUS SULFATE
     Indication: Normochromic normocytic anaemia
     Dosage: 1 DF, QD
     Route: 064
     Dates: start: 20170313, end: 20170914
  46. FERROUS SULFATE [Suspect]
     Active Substance: FERROUS SULFATE
     Dosage: 1 DOSAGE FORM, QD
     Route: 064
  47. FUROSEMIDE [Suspect]
     Active Substance: FUROSEMIDE
     Indication: Hypertension
     Dosage: 40 MILLIGRAM
     Route: 064
     Dates: start: 20170516
  48. HUMALOG [Suspect]
     Active Substance: INSULIN LISPRO
     Indication: Type 2 diabetes mellitus
     Dosage: 21 MICROGRAM/SQ. METER, QD
     Route: 064
     Dates: start: 20170224, end: 20170914
  49. HUMALOG [Suspect]
     Active Substance: INSULIN LISPRO
     Dosage: 21 MICROGRAM/SQ. METER, QD
     Route: 064
     Dates: start: 20170224, end: 20170224
  50. HUMALOG [Suspect]
     Active Substance: INSULIN LISPRO
     Dosage: 7 MICROGRAM/SQ. METER, QD
     Route: 064
     Dates: start: 20170224
  51. HUMALOG [Suspect]
     Active Substance: INSULIN LISPRO
     Dosage: 7 MICROGRAM/SQ. METER, QD
     Route: 064
     Dates: start: 20170224, end: 20170224
  52. AMITRIPTYLINE HYDROCHLORIDE [Suspect]
     Active Substance: AMITRIPTYLINE HYDROCHLORIDE
     Indication: Diabetic neuropathy
     Dosage: 2 DOSAGE FORM, QD
     Route: 064
     Dates: start: 20160930, end: 20170914
  53. AMITRIPTYLINE HYDROCHLORIDE [Suspect]
     Active Substance: AMITRIPTYLINE HYDROCHLORIDE
     Dosage: UNK
     Route: 064
  54. INSULIN LISPRO [Suspect]
     Active Substance: INSULIN LISPRO
     Indication: Type 2 diabetes mellitus
     Dosage: 7 MICROGRAM/SQ. METER, QD
     Route: 064
     Dates: start: 20170224
  55. INSULIN LISPRO [Suspect]
     Active Substance: INSULIN LISPRO
     Dosage: 21 MICROGRAM/SQ. METER, QD
     Route: 064
     Dates: start: 20170224, end: 20170914
  56. INSULIN LISPRO [Suspect]
     Active Substance: INSULIN LISPRO
     Dosage: 21 MICROGRAM/SQ. METER, QD
     Route: 064
     Dates: start: 20170224, end: 20170224
  57. INSULIN NOS [Suspect]
     Active Substance: INSULIN NOS
     Indication: Type 2 diabetes mellitus
     Dosage: UNK
     Route: 064
     Dates: start: 20161230, end: 20170224
  58. INSULIN NOS [Suspect]
     Active Substance: INSULIN NOS
     Dosage: UNK
     Route: 064
     Dates: start: 20161230, end: 20180224
  59. INSULIN NOS [Suspect]
     Active Substance: INSULIN NOS
     Dosage: UNK
     Route: 064
     Dates: start: 20160930, end: 20170224
  60. PROPRANOLOL HYDROCHLORIDE [Suspect]
     Active Substance: PROPRANOLOL HYDROCHLORIDE
     Indication: Hypertension
     Dosage: 80 MILLIGRAM, QD
     Route: 064
     Dates: start: 20170516
  61. PROPRANOLOL HYDROCHLORIDE [Suspect]
     Active Substance: PROPRANOLOL HYDROCHLORIDE
     Dosage: 25 MILLIGRAM, QD 25 MG, 1X/DAY
     Route: 064
     Dates: start: 20170720
  62. PROPRANOLOL HYDROCHLORIDE [Suspect]
     Active Substance: PROPRANOLOL HYDROCHLORIDE
     Dosage: UNK
     Route: 064
  63. CHLORPROMAZINE [Suspect]
     Active Substance: CHLORPROMAZINE
     Indication: Bipolar I disorder
     Dosage: UNK
     Route: 064
     Dates: start: 20170720
  64. CHLORPROMAZINE [Suspect]
     Active Substance: CHLORPROMAZINE
     Dosage: 25 MILLIGRAM, QD
     Route: 064
     Dates: start: 20170720
  65. CHLORPROMAZINE [Suspect]
     Active Substance: CHLORPROMAZINE
     Dosage: 0.5 DOSAGE FORM
     Route: 064
  66. NICARDIPINE HYDROCHLORIDE [Suspect]
     Active Substance: NICARDIPINE HYDROCHLORIDE
     Indication: Hypertension
     Dosage: 50 MILLIGRAM UNK (50MG FORME LP X2/J)
     Route: 064
     Dates: start: 20170313, end: 20170405
  67. NICARDIPINE HYDROCHLORIDE [Suspect]
     Active Substance: NICARDIPINE HYDROCHLORIDE
     Dosage: UNK
     Route: 064
     Dates: start: 20170516
  68. NICARDIPINE HYDROCHLORIDE [Suspect]
     Active Substance: NICARDIPINE HYDROCHLORIDE
     Dosage: 1 DOSAGE FORM
     Route: 064
     Dates: start: 20170313, end: 20180405
  69. POTASSIUM CHLORIDE [Suspect]
     Active Substance: POTASSIUM CHLORIDE
     Indication: Hypokalaemia
     Dosage: 120 MILLIGRAM, QD (2 TO 3 TIMES PER DAY)
     Route: 064
     Dates: start: 20170804
  70. POTASSIUM CHLORIDE [Suspect]
     Active Substance: POTASSIUM CHLORIDE
     Dosage: 3600 MILLIGRAM, QD 3600 MG, QD 1200 MG, QD (2 TO 3 TIMES PER DAY)
     Route: 064
     Dates: start: 20170804
  71. POTASSIUM CHLORIDE [Suspect]
     Active Substance: POTASSIUM CHLORIDE
     Dosage: 1200 MILLIGRAM, QD
     Route: 064
     Dates: start: 20170804
  72. LANTUS [Suspect]
     Active Substance: INSULIN GLARGINE
     Indication: Type 2 diabetes mellitus
     Dosage: 20 INTERNATIONAL UNIT, QD
     Route: 064
     Dates: start: 20170224, end: 20170914
  73. LANTUS [Suspect]
     Active Substance: INSULIN GLARGINE
     Dosage: 20 MILLIGRAM, QD
     Route: 064
     Dates: start: 20170224
  74. LEUCOVORIN [Suspect]
     Active Substance: LEUCOVORIN\LEUCOVORIN CALCIUM
     Indication: Normochromic normocytic anaemia
     Dosage: 5 MILLIGRAM, QD
     Route: 064
     Dates: start: 20170224, end: 20170313
  75. NICOTINE [Suspect]
     Active Substance: NICOTINE
     Indication: Ex-tobacco user
     Dosage: 7 MILLIGRAM, QD
     Route: 064
     Dates: start: 20170224, end: 20170516
  76. FOLIC ACID [Suspect]
     Active Substance: FOLIC ACID
     Indication: Normochromic normocytic anaemia
     Dosage: 5 MILLIGRAM, QD
     Route: 064
     Dates: start: 20170224, end: 20170313
  77. FOLIC ACID [Suspect]
     Active Substance: FOLIC ACID
     Dosage: 5 MILLIGRAM, QD
     Route: 064
     Dates: start: 20170313, end: 20170914
  78. FOLIC ACID [Suspect]
     Active Substance: FOLIC ACID
     Dosage: 5 MILLIGRAM, QD
     Route: 064
     Dates: start: 20170224, end: 20170914
  79. FOLIC ACID [Suspect]
     Active Substance: FOLIC ACID
     Dosage: 5 MILLIGRAM, QD
     Route: 064
     Dates: start: 20170313
  80. CHLORPROMAZINE [Suspect]
     Active Substance: CHLORPROMAZINE
     Indication: Bipolar I disorder
     Dosage: 25 MILLIGRAM, QD
     Route: 064
     Dates: start: 20170720
  81. LEVEMIR [Suspect]
     Active Substance: INSULIN DETEMIR
     Indication: Type 2 diabetes mellitus
     Dosage: 10 INTERNATIONAL UNIT, QD
     Route: 064
     Dates: start: 20160930, end: 20170224
  82. FERROUS SULFATE [Suspect]
     Active Substance: FERROUS SULFATE
     Indication: Normochromic normocytic anaemia
     Dosage: 1 DOSAGE FORM, QD
     Route: 064
     Dates: start: 20170313, end: 20170914
  83. AMITRIPTYLINE HYDROCHLORIDE [Suspect]
     Active Substance: AMITRIPTYLINE HYDROCHLORIDE
     Indication: Diabetic neuropathy
     Dosage: 2 DOSAGE FORM, QD
     Route: 064
     Dates: start: 20160930, end: 20170914
  84. LASIX [Suspect]
     Active Substance: FUROSEMIDE
     Indication: Hypertension
     Dosage: 50 MILLIGRAM
     Route: 064
     Dates: start: 201705
  85. LASIX [Suspect]
     Active Substance: FUROSEMIDE
     Dosage: 40 MILLIGRAM
     Route: 064
     Dates: start: 20170516

REACTIONS (5)
  - Foetal disorder [Unknown]
  - Low birth weight baby [Unknown]
  - Neutropenia neonatal [Not Recovered/Not Resolved]
  - Premature baby [Not Recovered/Not Resolved]
  - Foetal exposure during pregnancy [Recovered/Resolved]

NARRATIVE: CASE EVENT DATE: 20170914
